FAERS Safety Report 10534131 (Version 1)
Quarter: 2014Q4

REPORT INFORMATION
  Report Type: Spontaneous
  Country: US (occurrence: None)
  Receive Date: 20141020
  Receipt Date: 20141020
  Transmission Date: 20150529
  Serious: Yes (Other)
  Sender: FDA-Public Use
  Company Number: 1825660-2014-00814

PATIENT
  Sex: Female

DRUGS (1)
  1. CAREONE COLD SORE TREATMENT [Suspect]
     Active Substance: BENZALKONIUM CHLORIDE\CAMPHOR (SYNTHETIC)
     Indication: ORAL HERPES
     Dosage: TOPICAL, 1-3 TIMES DAILY
     Route: 061
     Dates: start: 20130710, end: 20130712

REACTIONS (2)
  - Rash [None]
  - Hypersensitivity [None]
